FAERS Safety Report 7012598-8 (Version None)
Quarter: 2010Q3

REPORT INFORMATION
  Report Type: 
  Country: None (occurrence: None)
  Receive Date: 20100924
  Receipt Date: 20100916
  Transmission Date: 20110219
  Serious: Yes (Other)
  Sender: FDA-Public Use
  Company Number: IT-EISAI INC.-E3810-04095-SPO-IT

PATIENT
  Age: 36 Year
  Sex: Female

DRUGS (12)
  1. PARIET (RABEPRAZOLE) [Suspect]
     Route: 048
  2. PARIET (RABEPRAZOLE) [Suspect]
     Dosage: UNKNOWN
     Route: 048
  3. IBUPROFEN [Suspect]
     Route: 048
  4. LOPEMID [Suspect]
     Route: 048
  5. LANSOX [Suspect]
     Route: 048
  6. PHLOROGLUCINOL [Suspect]
     Route: 048
  7. PHLOROGLUCINOL [Suspect]
     Route: 048
  8. SEKI [Suspect]
     Route: 048
  9. VECLAM [Suspect]
     Route: 048
  10. ZIMOX [Suspect]
     Route: 048
  11. CIPROFLOXACIN [Suspect]
     Route: 048
  12. LEVOXACIN [Suspect]
     Route: 048

REACTIONS (2)
  - MULTIPLE DRUG OVERDOSE INTENTIONAL [None]
  - SELF INJURIOUS BEHAVIOUR [None]
